FAERS Safety Report 10836602 (Version 1)
Quarter: 2015Q1

REPORT INFORMATION
  Report Type: Report from Study
  Country: FR (occurrence: FR)
  Receive Date: 20150219
  Receipt Date: 20150219
  Transmission Date: 20150721
  Serious: Yes (Other)
  Sender: FDA-Public Use
  Company Number: FR-MYLANLABS-2015M1005368

PATIENT

DRUGS (1)
  1. DIAZEPAM. [Suspect]
     Active Substance: DIAZEPAM
     Route: 063

REACTIONS (3)
  - Apnoea [Recovered/Resolved]
  - Hypotonia [Recovered/Resolved]
  - Exposure during breast feeding [Recovered/Resolved]
